FAERS Safety Report 10024025 (Version 1)
Quarter: 2014Q1

REPORT INFORMATION
  Report Type: Spontaneous
  Country: US (occurrence: None)
  Receive Date: 20140304
  Receipt Date: 20140304
  Transmission Date: 20141002
  Serious: Yes (Hospitalization, Other)
  Sender: FDA-Public Use
  Company Number: RB-60337-2013

PATIENT
  Sex: Male

DRUGS (2)
  1. SUBOXONE [Suspect]
     Indication: DRUG DEPENDENCE
     Dosage: DOSING DETAILS UNKNOWN; WAS TAKING SUBOXONE FOR 3-4 YEARS SUBLINGUAL
     Route: 060
     Dates: end: 201309
  2. ADDERALL [Suspect]
     Indication: PRODUCT USED FOR UNKNOWN INDICATION
     Dosage: DOSING DETAILS UNKNOWN
     Dates: end: 201309

REACTIONS (4)
  - Substance abuse [None]
  - Fatigue [None]
  - Drug abuse [None]
  - Drug detoxification [None]
